FAERS Safety Report 5494172-8 (Version None)
Quarter: 2007Q4

REPORT INFORMATION
  Report Type: 
  Country: None (occurrence: None)
  Receive Date: 20071023
  Receipt Date: 20071023
  Transmission Date: 20080405
  Serious: No
  Sender: FDA-Public Use
  Company Number: None

PATIENT
  Sex: Female

DRUGS (1)
  1. FLEXERIL [Suspect]
     Indication: FIBROMYALGIA
     Dosage: 10 MG ONE TID PO
     Route: 048
     Dates: start: 20071017

REACTIONS (2)
  - NO THERAPEUTIC RESPONSE [None]
  - PAIN [None]
